FAERS Safety Report 10007101 (Version 3)
Quarter: 2014Q1

REPORT INFORMATION
  Report Type: Report from Study
  Country: GB (occurrence: GB)
  Receive Date: 20140313
  Receipt Date: 20140317
  Transmission Date: 20141002
  Serious: Yes (Hospitalization, Other)
  Sender: FDA-Public Use
  Company Number: GB-JNJFOC-20140105911

PATIENT
  Sex: Male

DRUGS (1)
  1. SIMPONI [Suspect]
     Indication: PRODUCT USED FOR UNKNOWN INDICATION
     Route: 058
     Dates: end: 20140109

REACTIONS (5)
  - Mobility decreased [Unknown]
  - Myocardial infarction [Unknown]
  - Lower respiratory tract infection [Recovering/Resolving]
  - Headache [Unknown]
  - Dizziness [Unknown]
